FAERS Safety Report 9425348 (Version 1)
Quarter: 2013Q3

REPORT INFORMATION
  Report Type: Spontaneous
  Country: BE (occurrence: BE)
  Receive Date: 20130729
  Receipt Date: 20130729
  Transmission Date: 20140515
  Serious: Yes (Other)
  Sender: FDA-Public Use
  Company Number: BE-BRISTOL-MYERS SQUIBB COMPANY-19140003

PATIENT
  Age: 27 Year
  Sex: Female

DRUGS (1)
  1. ABILIFY INJECTION 7.5 MG/ML [Suspect]
     Route: 030

REACTIONS (1)
  - Circumstance or information capable of leading to medication error [Unknown]
